FAERS Safety Report 24205356 (Version 1)
Quarter: 2024Q3

REPORT INFORMATION
  Report Type: Spontaneous
  Country: US (occurrence: None)
  Receive Date: 20240812
  Receipt Date: 20240812
  Transmission Date: 20241016
  Serious: Yes (Life-Threatening, Disabling)
  Sender: Public
  Company Number: None

PATIENT
  Age: 64 Year
  Sex: Male
  Weight: 124.74 kg

DRUGS (15)
  1. POTASSIUM CHLORIDE [Suspect]
     Active Substance: POTASSIUM CHLORIDE
     Indication: Muscle spasms
     Dosage: 90 PILL ONCE DAILY BY MOUTH ?
     Route: 048
     Dates: start: 20180915, end: 20240709
  2. POTASSIUM CHLORIDE [Suspect]
     Active Substance: POTASSIUM CHLORIDE
     Indication: Renal disorder
  3. POTASSIUM CHLORIDE [Suspect]
     Active Substance: POTASSIUM CHLORIDE
     Indication: Cardiac disorder
  4. POTASSIUM CHLORIDE [Suspect]
     Active Substance: POTASSIUM CHLORIDE
     Indication: Dyspnoea
  5. OZEMPIC [Concomitant]
     Active Substance: SEMAGLUTIDE
  6. POTASSIUM CHLORIDE [Concomitant]
     Active Substance: POTASSIUM CHLORIDE
  7. AMLODIPINE [Concomitant]
     Active Substance: AMLODIPINE BESYLATE
  8. REPATHA XYRINGE [Concomitant]
  9. NOVOLOG [Concomitant]
     Active Substance: INSULIN ASPART
  10. BRILINEA [Concomitant]
  11. ZETIA [Concomitant]
     Active Substance: EZETIMIBE
  12. METOPROLOL SUCCINATE [Concomitant]
     Active Substance: METOPROLOL SUCCINATE
  13. VITAMIN B1 [Concomitant]
     Active Substance: THIAMINE HYDROCHLORIDE
  14. FOLIC ACID [Concomitant]
     Active Substance: FOLIC ACID
  15. NICIN FLUSH FREE [Concomitant]

REACTIONS (6)
  - Dyspnoea [None]
  - Muscular weakness [None]
  - Confusional state [None]
  - Memory impairment [None]
  - Palpitations [None]
  - Headache [None]
